FAERS Safety Report 5505543-5 (Version None)
Quarter: 2007Q4

REPORT INFORMATION
  Report Type: 
  Country: None (occurrence: None)
  Receive Date: 20071102
  Receipt Date: 20071022
  Transmission Date: 20080405
  Serious: Yes (Other)
  Sender: FDA-Public Use
  Company Number: PT-PFIZER INC-2007090174

PATIENT
  Age: 59 Year
  Sex: Male

DRUGS (6)
  1. CHAMPIX [Suspect]
     Indication: SMOKING CESSATION THERAPY
     Dosage: TEXT:0.5MG DAILY  TDD:0.5MG
     Route: 048
  2. CHAMPIX [Suspect]
     Dosage: TEXT:0.5MG BID  TDD:1MG
     Route: 048
  3. CHAMPIX [Suspect]
     Dosage: TEXT:1MG BID  TDD:2MG
     Route: 048
  4. FLUOXETINE [Concomitant]
     Route: 048
  5. SEDOXIL [Concomitant]
     Route: 048
  6. TRAZODONE HCL [Concomitant]
     Route: 048

REACTIONS (3)
  - ARRHYTHMIA [None]
  - ATRIAL FIBRILLATION [None]
  - DEPRESSION [None]
